FAERS Safety Report 9217582 (Version 2)
Quarter: 2014Q2

REPORT INFORMATION
  Report Type: Report from Study
  Country: US (occurrence: US)
  Receive Date: 20130408
  Receipt Date: 20140630
  Transmission Date: 20141212
  Serious: Yes (Death)
  Sender: FDA-Public Use
  Company Number: US-ROCHE-1211296

PATIENT
  Sex: Male

DRUGS (2)
  1. LUCENTIS [Suspect]
     Indication: RETINAL OEDEMA
     Route: 065
  2. LUCENTIS [Suspect]
     Route: 050
     Dates: start: 20130213

REACTIONS (1)
  - Death [Fatal]
